FAERS Safety Report 6835409-X (Version None)
Quarter: 2010Q2

REPORT INFORMATION
  Report Type: 
  Country: None (occurrence: None)
  Receive Date: 20100520
  Receipt Date: 20091203
  Transmission Date: 20101027
  Serious: Yes (Hospitalization, Other)
  Sender: FDA-Public Use
  Company Number: 2009214513

PATIENT
  Age: 71 Year
  Sex: Female
  Weight: 57.1 kg

DRUGS (7)
  1. PROVERA [Suspect]
     Indication: HORMONE REPLACEMENT THERAPY
     Dosage: 10 MG, ORAL ; 2.5 MG, ORAL
     Route: 048
     Dates: start: 19831001, end: 19890501
  2. PROVERA [Suspect]
     Indication: HORMONE REPLACEMENT THERAPY
     Dosage: 10 MG, ORAL ; 2.5 MG, ORAL
     Route: 048
     Dates: start: 19890501, end: 19960401
  3. PREMARIN [Suspect]
     Indication: HORMONE REPLACEMENT THERAPY
     Dosage: 0.625 MG ; 0.625 MG
     Dates: start: 19831001, end: 19881001
  4. PREMARIN [Suspect]
     Indication: HORMONE REPLACEMENT THERAPY
     Dosage: 0.625 MG ; 0.625 MG
     Dates: start: 19890501, end: 19960401
  5. ESTRADERM [Suspect]
     Indication: HORMONE REPLACEMENT THERAPY
     Dosage: 0.05 MG
     Dates: start: 19881001, end: 19890501
  6. PREMPRO [Suspect]
     Indication: HORMONE REPLACEMENT THERAPY
     Dosage: 0.625/2.5 MG
     Dates: start: 19960401, end: 20020601
  7. COUMADIN [Concomitant]

REACTIONS (1)
  - DEEP VEIN THROMBOSIS [None]
